FAERS Safety Report 9157135 (Version 1)
Quarter: 2013Q1

REPORT INFORMATION
  Report Type: Spontaneous
  Country: US (occurrence: None)
  Receive Date: 20130308
  Receipt Date: 20130308
  Transmission Date: 20140127
  Serious: Yes (Other)
  Sender: FDA-Public Use
  Company Number: None

PATIENT
  Age: 52 Year
  Sex: Female
  Weight: 56.7 kg

DRUGS (10)
  1. MONONESSA 28/0.035 MG/WATSON GENERIC-NORGESTMATE/ETHINYL [Suspect]
     Dosage: 0.25-0.035 1 DAILY MOUTH
     Route: 048
     Dates: start: 20130106
  2. EVOXAC [Concomitant]
  3. LAMICTAL [Concomitant]
  4. PILOCARPIME [Concomitant]
  5. ONFI [Concomitant]
  6. BONIVA [Concomitant]
  7. CLONAZAPAM [Concomitant]
  8. CALCIUM [Concomitant]
  9. VITAMIN D3 [Concomitant]
  10. MONANESSA [Concomitant]

REACTIONS (4)
  - Tremor [None]
  - Pain in extremity [None]
  - Arthralgia [None]
  - Gait disturbance [None]
